FAERS Safety Report 9686240 (Version 1)
Quarter: 2013Q4

REPORT INFORMATION
  Report Type: Spontaneous
  Country: US (occurrence: US)
  Receive Date: 20131113
  Receipt Date: 20131113
  Transmission Date: 20140711
  Serious: Yes (Death)
  Sender: FDA-Public Use
  Company Number: US-CUBIST PHARMACEUTICAL, INC.-2012S1000898

PATIENT
  Age: 18 Year
  Sex: Male

DRUGS (2)
  1. CUBICIN [Suspect]
     Indication: OSTEOMYELITIS
     Dosage: 500 MG, UNK
  2. CUBICIN [Suspect]
     Dosage: 500 MG, UNK

REACTIONS (1)
  - Injection site erythema [Recovered/Resolved]
